FAERS Safety Report 7994804-6 (Version None)
Quarter: 2011Q4

REPORT INFORMATION
  Report Type: 
  Country: None (occurrence: None)
  Receive Date: 20111220
  Receipt Date: 20111205
  Transmission Date: 20120403
  Serious: Yes (Hospitalization)
  Sender: FDA-Public Use
  Company Number: FR-CELGENEUS-056-21880-11120673

PATIENT
  Sex: Male

DRUGS (6)
  1. LOVENOX [Concomitant]
     Indication: PROPHYLAXIS
     Dosage: 4000 IU (INTERNATIONAL UNIT)
     Route: 058
     Dates: start: 20111024
  2. REVLIMID [Suspect]
     Indication: PLASMACYTOMA
     Dosage: 25 MILLIGRAM
     Route: 048
     Dates: start: 20111024
  3. BORTEZOMIB [Suspect]
     Indication: PLASMACYTOMA
     Dosage: 2.6 MILLIGRAM
     Route: 065
     Dates: start: 20111024
  4. DEXAMETHASONE [Suspect]
     Indication: PLASMACYTOMA
     Dosage: 20 MILLIGRAM
     Route: 065
     Dates: start: 20111024
  5. LOVENOX [Concomitant]
     Route: 058
     Dates: start: 20111129, end: 20111130
  6. LOVENOX [Concomitant]
     Route: 058
     Dates: start: 20111130

REACTIONS (1)
  - LUNG DISORDER [None]
